FAERS Safety Report 15023224 (Version 2)
Quarter: 2018Q2

REPORT INFORMATION
  Report Type: Spontaneous
  Country: US (occurrence: US)
  Receive Date: 20180618
  Receipt Date: 20180627
  Transmission Date: 20180711
  Serious: No
  Sender: FDA-Public Use
  Company Number: US-JNJFOC-20180604361

PATIENT
  Sex: Male
  Weight: 98.07 kg

DRUGS (1)
  1. INVEGA TRINZA [Suspect]
     Active Substance: PALIPERIDONE PALMITATE
     Indication: PRODUCT USED FOR UNKNOWN INDICATION
     Route: 030
     Dates: start: 20150901

REACTIONS (4)
  - Syringe issue [Unknown]
  - Procedural complication [Unknown]
  - Needle issue [Unknown]
  - Medication residue present [Unknown]
